FAERS Safety Report 13437480 (Version 1)
Quarter: 2017Q2

REPORT INFORMATION
  Report Type: Spontaneous
  Country: US (occurrence: US)
  Receive Date: 20170413
  Receipt Date: 20170413
  Transmission Date: 20170830
  Serious: No
  Sender: FDA-Public Use
  Company Number: US-SA-2016SA075561

PATIENT
  Age: 59 Year
  Sex: Male

DRUGS (3)
  1. BENADRYL [Concomitant]
     Active Substance: DIPHENHYDRAMINE HYDROCHLORIDE
     Route: 065
  2. ALLEGRA-D 24 HOUR [Suspect]
     Active Substance: FEXOFENADINE HYDROCHLORIDE\PSEUDOEPHEDRINE HYDROCHLORIDE
     Indication: NASAL CONGESTION
     Dosage: PRODUCT START DATE- YEARS AGO (10 YEARS)?DOSE AND DAILY DOSE: 180 MG/ 240 MG
     Route: 048
  3. ALLEGRA-D 24 HOUR [Suspect]
     Active Substance: FEXOFENADINE HYDROCHLORIDE\PSEUDOEPHEDRINE HYDROCHLORIDE
     Indication: MULTIPLE ALLERGIES
     Dosage: PRODUCT START DATE- YEARS AGO (10 YEARS)?DOSE AND DAILY DOSE: 180 MG/ 240 MG
     Route: 048

REACTIONS (2)
  - Product solubility abnormal [Unknown]
  - Product quality issue [Unknown]
